FAERS Safety Report 8854864 (Version 1)
Quarter: 2012Q4

REPORT INFORMATION
  Report Type: 
  Country: US (occurrence: US)
  Receive Date: 20121023
  Receipt Date: 20121023
  Transmission Date: 20130627
  Serious: No
  Sender: FDA-Public Use
  Company Number: US-PFIZER INC-2012262704

PATIENT

DRUGS (1)
  1. NEURONTIN [Suspect]
     Dosage: 800 mg, 3x/day

REACTIONS (2)
  - Muscle spasms [Unknown]
  - Insomnia [Unknown]
